FAERS Safety Report 19161799 (Version 1)
Quarter: 2021Q2

REPORT INFORMATION
  Report Type: Spontaneous
  Country: US (occurrence: US)
  Receive Date: 20210421
  Receipt Date: 20210421
  Transmission Date: 20210717
  Serious: No
  Sender: FDA-Public Use
  Company Number: US-JNJFOC-20210430933

PATIENT
  Age: 59 Year
  Sex: Female
  Weight: 66.28 kg

DRUGS (1)
  1. XARELTO [Suspect]
     Active Substance: RIVAROXABAN
     Indication: THROMBOSIS
     Route: 048
     Dates: start: 20210412

REACTIONS (9)
  - Asthenia [Unknown]
  - Somnolence [Unknown]
  - Headache [Unknown]
  - Hot flush [Unknown]
  - Asthenopia [Unknown]
  - Pain [Unknown]
  - Myalgia [Unknown]
  - Hyperhidrosis [Unknown]
  - Increased appetite [Unknown]

NARRATIVE: CASE EVENT DATE: 202104
